FAERS Safety Report 8023487-4 (Version None)
Quarter: 2012Q1

REPORT INFORMATION
  Report Type: 
  Country: None (occurrence: None)
  Receive Date: 20120105
  Receipt Date: 20111228
  Transmission Date: 20120608
  Serious: No
  Sender: FDA-Public Use
  Company Number: US-BIOGENIDEC-2011BI048014

PATIENT
  Sex: Female

DRUGS (2)
  1. AVONEX [Concomitant]
     Indication: MULTIPLE SCLEROSIS
     Route: 030
  2. TYSABRI [Suspect]
     Indication: MULTIPLE SCLEROSIS
     Route: 042
     Dates: start: 20110131

REACTIONS (11)
  - ALOPECIA [None]
  - WHITE BLOOD CELL COUNT INCREASED [None]
  - MUSCLE SPASMS [None]
  - HYPERGAMMAGLOBULINAEMIA BENIGN MONOCLONAL [None]
  - RENAL DISORDER [None]
  - BLOOD CHOLESTEROL INCREASED [None]
  - DERMATITIS ALLERGIC [None]
  - HEPATOMEGALY [None]
  - PYREXIA [None]
  - RENAL PAIN [None]
  - PROTEIN TOTAL INCREASED [None]
